FAERS Safety Report 8488120-6 (Version None)
Quarter: 2012Q3

REPORT INFORMATION
  Report Type: 
  Country: None (occurrence: None)
  Receive Date: 20120705
  Receipt Date: 20120627
  Transmission Date: 20120928
  Serious: Yes (Hospitalization)
  Sender: FDA-Public Use
  Company Number: US-BAYER-2012-056039

PATIENT
  Age: 35 Year
  Sex: Female
  Weight: 79.819 kg

DRUGS (9)
  1. DIVALPROEX SODIUM [Concomitant]
     Dosage: 500 MG, UNK
     Route: 048
     Dates: start: 20090821
  2. WELLBUTRIN [Concomitant]
     Indication: DEPRESSION
     Dosage: 300 MG/24 HOURS
     Route: 048
     Dates: start: 20070405
  3. SEROQUEL [Concomitant]
     Dosage: 50 MG, UNK
     Route: 048
     Dates: start: 20090809
  4. YASMIN [Suspect]
     Indication: CONTRACEPTION
     Dosage: UNK
     Dates: start: 20011015, end: 20020211
  5. KLONOPIN [Concomitant]
     Dosage: 1 MG, UNK
     Route: 048
     Dates: start: 20090809
  6. ALPRAZOLAM [Concomitant]
     Dosage: 0.25 MG, UNK
     Route: 048
     Dates: start: 20090809
  7. YAZ [Suspect]
     Indication: CONTRACEPTION
     Dosage: UNK
     Dates: start: 20081029, end: 20091107
  8. TOPAMAX [Concomitant]
     Dosage: 50 MG, UNK
     Route: 048
     Dates: start: 20090815
  9. PERCOCET [Concomitant]

REACTIONS (5)
  - DEEP VEIN THROMBOSIS [None]
  - PAIN [None]
  - PAIN IN EXTREMITY [None]
  - OEDEMA PERIPHERAL [None]
  - INJURY [None]
